FAERS Safety Report 5026096-4 (Version None)
Quarter: 2006Q2

REPORT INFORMATION
  Report Type: 
  Country: None (occurrence: None)
  Receive Date: 20060612
  Receipt Date: 20060612
  Transmission Date: 20061013
  Serious: No
  Sender: FDA-Public Use
  Company Number: None

PATIENT
  Sex: Male
  Weight: 95.2554 kg

DRUGS (1)
  1. LEVAQUIN [Suspect]
     Indication: DIVERTICULITIS
     Dosage: 500 MG 1X A DAY PO [ON AND OFF FROM 6-05]
     Route: 048
     Dates: start: 20050601, end: 20060101

REACTIONS (4)
  - ANXIETY [None]
  - ARTHRALGIA [None]
  - MUSCULAR WEAKNESS [None]
  - URTICARIA [None]
